FAERS Safety Report 25643109 (Version 1)
Quarter: 2025Q3

REPORT INFORMATION
  Report Type: Spontaneous
  Country: CN (occurrence: CN)
  Receive Date: 20250805
  Receipt Date: 20250805
  Transmission Date: 20251020
  Serious: Yes (Hospitalization)
  Sender: ROCHE
  Company Number: CN-ROCHE-10000350815

PATIENT
  Age: 72 Year
  Sex: Female

DRUGS (2)
  1. OBINUTUZUMAB [Suspect]
     Active Substance: OBINUTUZUMAB
     Indication: Nephrotic syndrome
     Route: 042
     Dates: start: 20250716, end: 20250716
  2. SODIUM CHLORIDE [Concomitant]
     Active Substance: SODIUM CHLORIDE
     Indication: Nephrotic syndrome
     Dosage: VEHICLE
     Route: 042
     Dates: start: 20250716, end: 20250716

REACTIONS (2)
  - Anaphylactoid reaction [Recovering/Resolving]
  - Off label use [Unknown]

NARRATIVE: CASE EVENT DATE: 20250716
